FAERS Safety Report 19236929 (Version 1)
Quarter: 2021Q2

REPORT INFORMATION
  Report Type: Spontaneous
  Country: US (occurrence: US)
  Receive Date: 20210507
  Receipt Date: 20210507
  Transmission Date: 20210717
  Serious: Yes (Other)
  Sender: FDA-Public Use
  Company Number: None

PATIENT
  Age: 61 Year
  Sex: Female
  Weight: 90 kg

DRUGS (12)
  1. SKELAXIN [Concomitant]
     Active Substance: METAXALONE
  2. TIMELESS AGE DEFYING SPF 20 MERLE NORMAN [Suspect]
     Active Substance: OCTINOXATE\OXYBENZONE
     Indication: PRODUCT USED FOR UNKNOWN INDICATION
     Route: 061
     Dates: start: 20210210, end: 20210507
  3. TRAZODONE [Concomitant]
     Active Substance: TRAZODONE HYDROCHLORIDE
  4. CYMBALTA [Concomitant]
     Active Substance: DULOXETINE HYDROCHLORIDE
  5. GABAPENTIN. [Concomitant]
     Active Substance: GABAPENTIN
  6. WELLBUTRIN [Concomitant]
     Active Substance: BUPROPION HYDROCHLORIDE
  7. FLAXSEED [Concomitant]
     Active Substance: FLAX SEED
  8. ZYRTEC [Concomitant]
     Active Substance: CETIRIZINE HYDROCHLORIDE
  9. MELOXICAM. [Concomitant]
     Active Substance: MELOXICAM
  10. MULTIVITAMIN [Concomitant]
     Active Substance: VITAMINS
  11. OCUVITE [Concomitant]
     Active Substance: VITAMINS
  12. PHILLIPS COLON HEALTH PROBIOTIC [Concomitant]
     Active Substance: PROBIOTICS NOS

REACTIONS (4)
  - Blister [None]
  - Rash [None]
  - Pruritus [None]
  - Pain of skin [None]

NARRATIVE: CASE EVENT DATE: 20210210
